FAERS Safety Report 5246884-9 (Version None)
Quarter: 2007Q1

REPORT INFORMATION
  Report Type: 
  Country: None (occurrence: None)
  Receive Date: 20070226
  Receipt Date: 20070214
  Transmission Date: 20070707
  Serious: Yes (Hospitalization)
  Sender: FDA-Public Use
  Company Number: JP-BRISTOL-MYERS SQUIBB COMPANY-13682182

PATIENT
  Age: 57 Year
  Sex: Female

DRUGS (11)
  1. TAXOL [Suspect]
     Indication: NON-SMALL CELL LUNG CANCER
     Route: 041
     Dates: start: 20070206, end: 20070206
  2. PARAPLATIN [Suspect]
     Indication: NON-SMALL CELL LUNG CANCER
     Route: 041
     Dates: start: 20070206, end: 20070206
  3. BLOPRESS [Concomitant]
     Route: 048
  4. TENORMIN [Concomitant]
     Route: 048
  5. DEPAS [Concomitant]
     Route: 048
  6. DECADRON [Concomitant]
     Route: 042
     Dates: start: 20070205, end: 20070206
  7. KYTRIL [Concomitant]
     Route: 042
     Dates: start: 20070206, end: 20070206
  8. ZANTAC [Concomitant]
     Route: 042
     Dates: start: 20070206, end: 20070206
  9. RESTAMIN [Concomitant]
     Route: 048
     Dates: start: 20070206, end: 20070206
  10. LACTEC [Concomitant]
     Route: 042
     Dates: start: 20070206, end: 20070206
  11. VOLTAREN [Concomitant]
     Route: 054
     Dates: start: 20070207, end: 20070209

REACTIONS (2)
  - SYNCOPE [None]
  - VOMITING [None]
